FAERS Safety Report 6663716-2 (Version None)
Quarter: 2010Q1

REPORT INFORMATION
  Report Type: 
  Country: None (occurrence: None)
  Receive Date: 20100331
  Receipt Date: 20100331
  Transmission Date: 20100710
  Serious: Yes (Other)
  Sender: FDA-Public Use
  Company Number: None

PATIENT
  Sex: Female
  Weight: 61 kg

DRUGS (1)
  1. AZITHROMYCIN [Suspect]
     Indication: PNEUMONIA
     Dosage: 500MG DAILY IV
     Route: 042
     Dates: start: 20100320, end: 20100321

REACTIONS (3)
  - INFUSION SITE EXTRAVASATION [None]
  - INFUSION SITE OEDEMA [None]
  - INFUSION SITE VESICLES [None]
